FAERS Safety Report 5904551-X (Version None)
Quarter: 2008Q4

REPORT INFORMATION
  Report Type: 
  Country: None (occurrence: None)
  Receive Date: 20081001
  Receipt Date: 20080923
  Transmission Date: 20090506
  Serious: Yes (Hospitalization)
  Sender: FDA-Public Use
  Company Number: US-NOVOPROD-274491

PATIENT
  Sex: Female
  Weight: 113.5 kg

DRUGS (21)
  1. INSULIN DETEMIR FLEXPEN [Suspect]
     Indication: INSULIN-REQUIRING TYPE 2 DIABETES MELLITUS
     Dosage: 10 U, QD
     Route: 058
     Dates: start: 20080407, end: 20080413
  2. INSULIN DETEMIR FLEXPEN [Suspect]
     Dosage: 16 U, QD
     Route: 058
     Dates: start: 20080414
  3. GLUCOPHAGE [Concomitant]
     Indication: DIABETES MELLITUS
     Dosage: 2000 MG, QD
     Route: 048
     Dates: start: 20040101
  4. FLONASE [Concomitant]
     Indication: CHRONIC OBSTRUCTIVE PULMONARY DISEASE
     Dosage: 2 PUFF, QD
     Route: 045
     Dates: start: 20030101
  5. CELEBREX [Concomitant]
     Indication: ARTHRITIS
     Dosage: 200 MG, QD
     Route: 048
     Dates: start: 20040101
  6. FUROSEMIDE [Concomitant]
     Indication: DIURETIC THERAPY
     Dosage: 40 MG, QD
     Route: 048
     Dates: start: 20020101
  7. ZANAFLEX [Concomitant]
     Indication: MUSCLE RELAXANT THERAPY
     Dosage: 16 MG, QD
     Route: 048
     Dates: start: 20070611
  8. LYRICA [Concomitant]
     Indication: ARTHRITIS
     Dosage: 300 MG, QD
     Route: 048
     Dates: start: 20070611
  9. GLIPIZIDE [Concomitant]
     Indication: DIABETES MELLITUS
     Dosage: 5 MG, QD
     Route: 048
     Dates: start: 20070611
  10. ALBUTEROL [Concomitant]
     Indication: CHRONIC OBSTRUCTIVE PULMONARY DISEASE
     Dosage: 2.5 MG, QD
     Route: 055
     Dates: start: 20080814, end: 20080818
  11. SERTRALINE HYDROCHLORIDE [Concomitant]
     Indication: ANXIETY
     Dosage: 450 MG, QD
     Route: 048
     Dates: start: 20080414, end: 20080418
  12. LEVOFLOXACIN [Concomitant]
     Indication: PNEUMONIA
     Dosage: 500 MG, QD
     Route: 042
     Dates: start: 20080411, end: 20080418
  13. SIMVASTATIN [Concomitant]
     Indication: DIABETES MELLITUS
     Dosage: 20 MG, UNK
     Route: 048
     Dates: start: 20080415, end: 20080418
  14. METHYLPREDNISOLONE [Concomitant]
     Indication: CHRONIC OBSTRUCTIVE PULMONARY DISEASE
     Dosage: 160 MG, QD
     Route: 042
     Dates: start: 20080415, end: 20080417
  15. METHYLPREDNISOLONE [Concomitant]
     Dosage: 40 MG, QD
     Route: 042
     Dates: start: 20080418, end: 20080418
  16. GUAIFENESIN LA [Concomitant]
     Indication: CHRONIC OBSTRUCTIVE PULMONARY DISEASE
     Dosage: 1200 MG, QD
     Route: 048
     Dates: start: 20080416, end: 20080418
  17. INSULIN REGULAR                    /01223201/ [Concomitant]
     Indication: DIABETES MELLITUS
     Dosage: 16 U, QD
     Route: 058
     Dates: start: 20080417, end: 20080418
  18. ARFORMOTEROL [Concomitant]
     Indication: CHRONIC OBSTRUCTIVE PULMONARY DISEASE
     Dosage: 30 MCG, QD
     Route: 055
     Dates: start: 20080414, end: 20080418
  19. BUDESONIDE [Concomitant]
     Indication: CHRONIC OBSTRUCTIVE PULMONARY DISEASE
     Dosage: 1 MG, QD
     Route: 055
     Dates: start: 20080414, end: 20080418
  20. FLUTICASONE PROPIONATE [Concomitant]
     Indication: CHRONIC OBSTRUCTIVE PULMONARY DISEASE
     Dosage: 50 UG,ACTUATION.
     Route: 055
     Dates: start: 20080414, end: 20080418
  21. ACETAMINOPHEN [Concomitant]
     Indication: BODY TEMPERATURE INCREASED
     Dosage: 3000 MG, QD
     Route: 048
     Dates: start: 20080414, end: 20080414

REACTIONS (1)
  - PNEUMONIA [None]
